FAERS Safety Report 4778496-5 (Version None)
Quarter: 2005Q3

REPORT INFORMATION
  Report Type: 
  Country: None (occurrence: None)
  Receive Date: 20050922
  Receipt Date: 20050912
  Transmission Date: 20060218
  Serious: Yes (Other)
  Sender: FDA-Public Use
  Company Number: 2005127036

PATIENT
  Sex: Female
  Weight: 81.6475 kg

DRUGS (4)
  1. DILANTIN [Suspect]
     Indication: CONVULSION
     Dosage: 750 MG (250 MG, 3 IN 1 D) ORAL
     Route: 048
     Dates: end: 19820101
  2. NEURONTIN [Suspect]
     Indication: PARTIAL SEIZURES
     Dosage: 600 MG (200 MG, 3 IN 1 D) ORAL
     Route: 048
  3. PHENOBARBITAL TAB [Concomitant]
  4. MYSOLINE ^ASTRA^ (PRIMIDONE) [Concomitant]

REACTIONS (6)
  - ARTHRITIS [None]
  - ERYTHEMA [None]
  - PARTIAL SEIZURES [None]
  - PRURITUS [None]
  - SCRATCH [None]
  - SOMNOLENCE [None]
